FAERS Safety Report 13269748 (Version 4)
Quarter: 2017Q4

REPORT INFORMATION
  Report Type: Report from Study
  Country: None (occurrence: US)
  Receive Date: 20170224
  Receipt Date: 20171127
  Transmission Date: 20180320
  Serious: Yes (Other)
  Sender: FDA-Public Use
  Company Number: US-ABBVIE-17K-163-1882898-00

PATIENT
  Sex: Male
  Weight: 149.82 kg

DRUGS (1)
  1. HUMIRA [Suspect]
     Active Substance: ADALIMUMAB
     Indication: COLITIS ULCERATIVE
     Route: 058

REACTIONS (12)
  - Diabetes mellitus [Unknown]
  - Cholelithiasis [Unknown]
  - Neuropathy peripheral [Not Recovered/Not Resolved]
  - Peripheral swelling [Not Recovered/Not Resolved]
  - Gait disturbance [Unknown]
  - Joint swelling [Unknown]
  - Blood pressure increased [Unknown]
  - Abnormal weight gain [Recovering/Resolving]
  - Pain in extremity [Not Recovered/Not Resolved]
  - Drug effect delayed [Unknown]
  - Blood cholesterol increased [Unknown]
  - Aortic aneurysm [Unknown]

NARRATIVE: CASE EVENT DATE: 2017
